FAERS Safety Report 7105084-8 (Version None)
Quarter: 2010Q4

REPORT INFORMATION
  Report Type: 
  Country: None (occurrence: None)
  Receive Date: 20101116
  Receipt Date: 20100806
  Transmission Date: 20110411
  Serious: Yes (Hospitalization)
  Sender: FDA-Public Use
  Company Number: GB-ASTRAZENECA-2010SE26356

PATIENT
  Age: 45 Year
  Sex: Female
  Weight: 93 kg

DRUGS (7)
  1. ZOLADEX [Suspect]
     Indication: UTERINE LEIOMYOMA
     Route: 058
     Dates: start: 20100514
  2. ZOLADEX [Suspect]
     Indication: POLYCYSTIC OVARIES
     Route: 058
     Dates: start: 20100514
  3. ZOLADEX [Suspect]
     Indication: BLADDER DYSFUNCTION
     Route: 058
     Dates: start: 20100514
  4. ZOLADEX [Suspect]
     Indication: PREMENSTRUAL SYNDROME
     Route: 058
     Dates: start: 20100514
  5. HRT TABLETS [Concomitant]
     Route: 048
  6. LEVOTHYROXINE [Concomitant]
     Indication: HYPOTHYROIDISM
     Route: 048
     Dates: start: 20030101
  7. TIBOLONE [Concomitant]
     Indication: BACK DISORDER
     Route: 048
     Dates: start: 20100514, end: 20100604

REACTIONS (19)
  - ABDOMINAL DISTENSION [None]
  - ABDOMINAL PAIN UPPER [None]
  - ALOPECIA [None]
  - BRADYCARDIA [None]
  - CHEST PAIN [None]
  - DIZZINESS [None]
  - DYSPNOEA [None]
  - FATIGUE [None]
  - FLUID RETENTION [None]
  - GASTRIC DILATATION [None]
  - HEADACHE [None]
  - HYPOTENSION [None]
  - JOINT SWELLING [None]
  - OEDEMA [None]
  - PALPITATIONS [None]
  - PARAESTHESIA [None]
  - SENSATION OF HEAVINESS [None]
  - THIRST [None]
  - WEIGHT INCREASED [None]
